FAERS Safety Report 9001854 (Version 1)
Quarter: 2013Q1

REPORT INFORMATION
  Report Type: Spontaneous
  Country: GB (occurrence: GB)
  Receive Date: 20130108
  Receipt Date: 20130108
  Transmission Date: 20140127
  Serious: Yes (Hospitalization, Other)
  Sender: FDA-Public Use
  Company Number: GB-SP-2012-12588

PATIENT
  Age: 57 Year
  Sex: Male
  Weight: 71.4 kg

DRUGS (3)
  1. IMMUCYST [Suspect]
     Indication: CHEMOTHERAPY
     Dosage: NOT REPORTED
     Route: 065
     Dates: start: 20121206, end: 20121206
  2. TRIMETHOPRIM [Concomitant]
     Dosage: NOT REPORTED
     Route: 065
  3. PARACETAMOL [Concomitant]
     Dosage: NOT REPORTED
     Route: 065

REACTIONS (2)
  - Liver function test abnormal [Not Recovered/Not Resolved]
  - Neutropenia [Not Recovered/Not Resolved]
